FAERS Safety Report 6685255-5 (Version None)
Quarter: 2010Q2

REPORT INFORMATION
  Report Type: 
  Country: None (occurrence: None)
  Receive Date: 20100416
  Receipt Date: 20100408
  Transmission Date: 20101027
  Serious: Yes (Other)
  Sender: FDA-Public Use
  Company Number: FR-ABBOTT-10P-056-0628989-00

PATIENT
  Sex: Female
  Weight: 85 kg

DRUGS (3)
  1. HUMIRA [Suspect]
     Indication: ANKYLOSING SPONDYLITIS
     Route: 058
     Dates: start: 20080901, end: 20100301
  2. METHOTREXATE [Concomitant]
     Indication: ANKYLOSING SPONDYLITIS
     Route: 048
     Dates: start: 20071101
  3. BREXIN [Concomitant]
     Indication: ANKYLOSING SPONDYLITIS
     Dates: start: 20080901

REACTIONS (3)
  - DRUG INEFFECTIVE [None]
  - ENDOMETRIAL METAPLASIA [None]
  - UTERINE CERVICAL SQUAMOUS METAPLASIA [None]
